FAERS Safety Report 22321472 (Version 1)
Quarter: 2023Q2

REPORT INFORMATION
  Report Type: Spontaneous
  Country: US (occurrence: US)
  Receive Date: 20230515
  Receipt Date: 20230515
  Transmission Date: 20230722
  Serious: No
  Sender: FDA-Public Use
  Company Number: US-CYCLE PHARMACEUTICALS LTD-2023-CYC-000020

PATIENT

DRUGS (4)
  1. NITYR [Suspect]
     Active Substance: NITISINONE
     Indication: Tyrosinaemia
     Dosage: UNK UNK, QD
     Route: 048
  2. NITYR [Suspect]
     Active Substance: NITISINONE
     Dosage: UNK UNK, TWICE WEEKLY
     Route: 048
  3. NITYR [Suspect]
     Active Substance: NITISINONE
     Dosage: UNK UNK, WEEKLY
     Route: 048
  4. NITYR [Suspect]
     Active Substance: NITISINONE
     Dosage: 2 MG, QD
     Route: 048
     Dates: end: 202304

REACTIONS (3)
  - Rash [Unknown]
  - Amino acid level abnormal [Unknown]
  - Amino acid level increased [Unknown]

NARRATIVE: CASE EVENT DATE: 20220101
